FAERS Safety Report 21406985 (Version 1)
Quarter: 2022Q4

REPORT INFORMATION
  Report Type: Spontaneous
  Country: US (occurrence: None)
  Receive Date: 20221003
  Receipt Date: 20221003
  Transmission Date: 20230113
  Serious: Yes (Other)
  Sender: FDA-Public Use
  Company Number: None

PATIENT
  Age: 46 Year
  Sex: Female
  Weight: 130.5 kg

DRUGS (24)
  1. MAGNESIUM CITRATE LEMON [Suspect]
     Active Substance: MAGNESIUM CITRATE
     Indication: Peristalsis visible
     Dosage: FREQUENCY : TWICE A DAY;?
     Route: 048
     Dates: start: 20220912, end: 20220926
  2. ADVAIR HFA [Concomitant]
     Active Substance: FLUTICASONE PROPIONATE\SALMETEROL XINAFOATE
  3. ALBUTEROL SULFATE [Concomitant]
     Active Substance: ALBUTEROL SULFATE
  4. ATIVAN [Concomitant]
     Active Substance: LORAZEPAM
  5. BUSPIRONE [Concomitant]
     Active Substance: BUSPIRONE HYDROCHLORIDE
  6. CLONIDINE [Concomitant]
     Active Substance: CLONIDINE
  7. ENOXAPARIN [Concomitant]
  8. Sodium Solution [Concomitant]
  9. FAMOTIDINE [Concomitant]
     Active Substance: FAMOTIDINE
  10. GABAPENTIN [Concomitant]
     Active Substance: GABAPENTIN
  11. LOSARTAN POTASSIUM [Concomitant]
     Active Substance: LOSARTAN POTASSIUM
  12. METHOCARBAMOL [Concomitant]
     Active Substance: METHOCARBAMOL
  13. MORPHINE SULFATE [Concomitant]
  14. NORCO [Concomitant]
     Active Substance: ACETAMINOPHEN\HYDROCODONE BITARTRATE
  15. OMEPRAZOLE [Concomitant]
     Active Substance: OMEPRAZOLE
  16. ONDANSETRON [Concomitant]
     Active Substance: ONDANSETRON
  17. POTASSIUM CHLORIDE [Concomitant]
     Active Substance: POTASSIUM CHLORIDE
  18. SILDENAFIL [Concomitant]
     Active Substance: SILDENAFIL
  19. SPIRONOLACTONE [Concomitant]
     Active Substance: SPIRONOLACTONE
  20. TORSEMIDE [Concomitant]
     Active Substance: TORSEMIDE
  21. ZINC OXIDE [Concomitant]
     Active Substance: ZINC OXIDE
  22. MILK OF MAGNESIA [Concomitant]
  23. Docusate Sodium Ora [Concomitant]
  24. Docusate Sodium suppository [Concomitant]

REACTIONS (2)
  - Abdominal pain upper [None]
  - Dizziness [None]

NARRATIVE: CASE EVENT DATE: 20220926
